FAERS Safety Report 8630777 (Version 2)
Quarter: 2012Q4

REPORT INFORMATION
  Report Type: 
  Country: US (occurrence: US)
  Receive Date: 20120622
  Receipt Date: 20120924
  Transmission Date: 20130627
  Serious: Yes (Hospitalization, Other)
  Sender: FDA-Public Use
  Company Number: US-BRISTOL-MYERS SQUIBB COMPANY-16656399

PATIENT
  Age: 72 Year
  Sex: Male

DRUGS (2)
  1. YERVOY [Suspect]
     Indication: METASTATIC MALIGNANT MELANOMA
     Dosage: No of doses-4
     Route: 042
     Dates: start: 20111105, end: 201202
  2. PREDNISONE [Suspect]

REACTIONS (2)
  - Hypopituitarism [Recovering/Resolving]
  - Hyperglycaemia [Recovering/Resolving]
